FAERS Safety Report 19363871 (Version 1)
Quarter: 2021Q2

REPORT INFORMATION
  Report Type: Spontaneous
  Country: US (occurrence: US)
  Receive Date: 20210602
  Receipt Date: 20210602
  Transmission Date: 20210717
  Serious: Yes (Other)
  Sender: FDA-Public Use
  Company Number: None

PATIENT
  Age: 52 Year
  Sex: Female
  Weight: 72.57 kg

DRUGS (23)
  1. SIMETHICONE (DIMETHICONE) [Concomitant]
     Active Substance: DIMETHICONE
  2. M.S.M. [Concomitant]
  3. CLOBETASOL 0.05% OINTMENT [Concomitant]
     Active Substance: CLOBETASOL
  4. ASORBIC ACID (VITAMIN C) [Concomitant]
  5. TURMERIC CURCUMIN COMPLEX CAPSULES [Concomitant]
  6. LISINOPRIL. [Concomitant]
     Active Substance: LISINOPRIL
  7. OMEGA?3 FLAXSEED OIL [Concomitant]
  8. ONDANSETRON [Concomitant]
     Active Substance: ONDANSETRON
  9. PSEUDOEPHEDRINE. [Concomitant]
     Active Substance: PSEUDOEPHEDRINE HYDROCHLORIDE
  10. MAGNESIUM [Concomitant]
     Active Substance: MAGNESIUM
  11. TRETINOIN 0.025% GEL [Concomitant]
  12. ACYCLOVIR. [Concomitant]
     Active Substance: ACYCLOVIR
  13. BENZOYL PEROXIDE 5% GEL [Concomitant]
     Active Substance: BENZOYL PEROXIDE
  14. POLYETHYLENE GLYCOL 17 [Concomitant]
  15. RIZATRIPTAN. [Concomitant]
     Active Substance: RIZATRIPTAN
  16. AMOX?CLAV 8/375 MG [Suspect]
     Active Substance: AMOXICILLIN\CLAVULANATE POTASSIUM
     Indication: SINUSITIS
     Dosage: ?          QUANTITY:2 DF DOSAGE FORM;?
     Route: 048
     Dates: start: 20210318, end: 20210325
  17. EXTRA STRENGTH HEADACHE RELIEF W/ACETAMINOPHEN, ASPIRIN, AND CAFFEINE [Concomitant]
  18. CETIRIZINE [Concomitant]
     Active Substance: CETIRIZINE HYDROCHLORIDE
  19. FLUTICASONE PROPIONATE ACTUATION NASAL SPRAY [Concomitant]
  20. VITAMIN B COMPLEX [Concomitant]
     Active Substance: CYANOCOBALAMIN\DEXPANTHENOL\NIACINAMIDE\PYRIDOXINE HYDROCHLORIDE\RIBOFLAVIN 5^-PHOSPHATE SODIUM\THIAMINE HYDROCHLORIDE\VITAMIN B COMPLEX
  21. MELATONIN [Concomitant]
     Active Substance: MELATONIN
  22. CALCIUM CITRATE PLUS VITAMIN D3 [Concomitant]
  23. EYE HEALTH FORMULA SOFTGEL [Concomitant]

REACTIONS (3)
  - Abdominal discomfort [None]
  - Flatulence [None]
  - Vomiting [None]

NARRATIVE: CASE EVENT DATE: 20210324
